FAERS Safety Report 25741530 (Version 2)
Quarter: 2025Q3

REPORT INFORMATION
  Report Type: Report from Study
  Country: US (occurrence: US)
  Receive Date: 20250829
  Receipt Date: 20250905
  Transmission Date: 20251021
  Serious: Yes (Hospitalization)
  Sender: ABBVIE
  Company Number: US-ABBVIE-6434561

PATIENT
  Age: 82 Year
  Sex: Male

DRUGS (1)
  1. VYALEV [Suspect]
     Active Substance: FOSCARBIDOPA\FOSLEVODOPA
     Indication: Parkinson^s disease
     Route: 058
     Dates: start: 20250619

REACTIONS (3)
  - Dehydration [Unknown]
  - Dysphagia [Unknown]
  - Computerised tomogram abdomen abnormal [Unknown]

NARRATIVE: CASE EVENT DATE: 20250101
